FAERS Safety Report 25140340 (Version 2)
Quarter: 2025Q2

REPORT INFORMATION
  Report Type: Spontaneous
  Country: BR (occurrence: BR)
  Receive Date: 20250331
  Receipt Date: 20250620
  Transmission Date: 20250717
  Serious: Yes (Other)
  Sender: BAYER HEALTHCARE PHARMACEUTICALS INC.
  Company Number: BR-BAYER-2025A040333

PATIENT
  Age: 77 Year
  Sex: Male

DRUGS (2)
  1. FINERENONE [Suspect]
     Active Substance: FINERENONE
     Indication: Chronic kidney disease
  2. FINERENONE [Suspect]
     Active Substance: FINERENONE
     Indication: Diabetes mellitus

REACTIONS (4)
  - Blood potassium increased [None]
  - Blood creatinine increased [None]
  - Blood urea increased [None]
  - Nausea [None]

NARRATIVE: CASE EVENT DATE: 20250215
